FAERS Safety Report 10050383 (Version 1)
Quarter: 2014Q1

REPORT INFORMATION
  Report Type: Spontaneous
  Country: US (occurrence: None)
  Receive Date: 20140331
  Receipt Date: 20140331
  Transmission Date: 20141002
  Serious: Yes (Other)
  Sender: FDA-Public Use
  Company Number: None

PATIENT
  Age: 1 Week
  Sex: Male
  Weight: 1 kg

DRUGS (1)
  1. MIDAZOLAM [Suspect]
     Indication: SEDATION
     Dates: start: 20140128, end: 20140325

REACTIONS (2)
  - Incorrect dose administered [None]
  - Product label issue [None]
